FAERS Safety Report 7490063-1 (Version None)
Quarter: 2011Q2

REPORT INFORMATION
  Report Type: 
  Country: None (occurrence: None)
  Receive Date: 20110519
  Receipt Date: 20110506
  Transmission Date: 20111010
  Serious: No
  Sender: FDA-Public Use
  Company Number: US-PFIZER INC-2011097965

PATIENT
  Sex: Female

DRUGS (3)
  1. LAMICTAL [Suspect]
     Dosage: 25 MG, UNK
  2. XANAX [Suspect]
     Dosage: 6 MG PER DAY
  3. XANAX [Suspect]
     Dosage: 5 MG, UNK
     Dates: start: 20110505

REACTIONS (5)
  - HEPATIC ENZYME INCREASED [None]
  - INCORRECT DOSE ADMINISTERED [None]
  - INSOMNIA [None]
  - PALPITATIONS [None]
  - ANXIETY [None]
